FAERS Safety Report 23247847 (Version 2)
Quarter: 2024Q1

REPORT INFORMATION
  Report Type: Spontaneous
  Country: HU (occurrence: HU)
  Receive Date: 20231130
  Receipt Date: 20240328
  Transmission Date: 20240410
  Serious: Yes (Other)
  Sender: FDA-Public Use
  Company Number: HU-VERTEX PHARMACEUTICALS-2023-017792

PATIENT
  Age: 37 Year
  Sex: Female

DRUGS (6)
  1. ELEXACAFTOR\IVACAFTOR\TEZACAFTOR [Suspect]
     Active Substance: ELEXACAFTOR\IVACAFTOR\TEZACAFTOR
     Indication: Cystic fibrosis
     Dosage: 2 TABLETS (75 MG IVA, 50 MG TEZA AND 100 MG ELEXA) IN AM 14 HOURS APART
     Route: 048
     Dates: start: 202211
  2. KALYDECO [Suspect]
     Active Substance: IVACAFTOR
     Indication: Cystic fibrosis
     Dosage: 150 MG IN EVENING 14 HOURS APART
     Route: 048
     Dates: start: 202211
  3. DORNASE ALFA [Concomitant]
     Active Substance: DORNASE ALFA
     Indication: Cystic fibrosis
     Dosage: 1X1 AMP
  4. PANCREAS [Concomitant]
     Indication: Cystic fibrosis
     Dosage: 3X10,000 IU
  5. BISOPROLOL [Concomitant]
     Active Substance: BISOPROLOL\BISOPROLOL FUMARATE
     Indication: Sinus tachycardia
     Dosage: 1X2.5 MG
  6. SPIRONOLACTONE [Concomitant]
     Active Substance: SPIRONOLACTONE
     Indication: Pulmonary hypertension
     Dosage: 1X2.5 MG

REACTIONS (3)
  - Anxiety [Recovered/Resolved]
  - Suicidal ideation [Recovered/Resolved]
  - Depression [Recovered/Resolved]

NARRATIVE: CASE EVENT DATE: 20230801
